FAERS Safety Report 4834087-9 (Version None)
Quarter: 2005Q4

REPORT INFORMATION
  Report Type: 
  Country: None (occurrence: None)
  Receive Date: 20051115
  Receipt Date: 20051031
  Transmission Date: 20060501
  Serious: Yes (Hospitalization, Other)
  Sender: FDA-Public Use
  Company Number: 2005S1008810

PATIENT
  Age: 61 Year
  Sex: Male
  Weight: 84.8226 kg

DRUGS (14)
  1. ANGIOMAX [Suspect]
     Dosage: 0.1 MG; IVBOL; 0.25 MG; IVBOL
     Route: 040
     Dates: start: 20050502, end: 20050502
  2. ANGIOMAX [Suspect]
     Dosage: 0.1 MG; IVBOL; 0.25 MG; IVBOL
     Route: 040
     Dates: start: 20050502, end: 20050502
  3. FUROSEMIDE [Suspect]
     Indication: OEDEMA
     Dosage: 20 MG; QD; PO
     Route: 048
     Dates: start: 20010101, end: 20050513
  4. RABEPRAZOLE SODIUM [Concomitant]
  5. DILTIAZEM HCL [Concomitant]
  6. LISINOPRIL [Concomitant]
  7. CLONAZEPAM [Concomitant]
  8. ATORVASTATIN CALCIUM [Concomitant]
  9. AZELASTINE [Concomitant]
  10. TIOTROPIUM BROMIDE [Concomitant]
  11. CLOPIDOGREL BISULFATE [Concomitant]
  12. EZETIMIBE [Concomitant]
  13. SALMETEROL/FLUTICASONE [Concomitant]
  14. ACETYLSALICYLIC ACID [Concomitant]

REACTIONS (8)
  - DIARRHOEA [None]
  - DIZZINESS POSTURAL [None]
  - HYPERKALAEMIA [None]
  - HYPONATRAEMIA [None]
  - METABOLIC ACIDOSIS [None]
  - NAUSEA [None]
  - RENAL FAILURE ACUTE [None]
  - VOMITING [None]
